FAERS Safety Report 6405191-9 (Version None)
Quarter: 2009Q4

REPORT INFORMATION
  Report Type: 
  Country: None (occurrence: None)
  Receive Date: 20091019
  Receipt Date: 20091009
  Transmission Date: 20100525
  Serious: Yes (Hospitalization)
  Sender: FDA-Public Use
  Company Number: FR-AMGEN-US369299

PATIENT
  Age: 50 Year
  Sex: Female

DRUGS (3)
  1. ENBREL [Suspect]
     Indication: RHEUMATOID ARTHRITIS
     Route: 058
     Dates: start: 20080711
  2. URSOLVAN-200 [Concomitant]
     Indication: BILIARY CIRRHOSIS PRIMARY
     Dosage: UNKNOWN
     Dates: start: 19900101, end: 20081201
  3. URSOLVAN-200 [Concomitant]
     Dosage: HIGHER DOSE (EXACT DOSE UNKNOWN)
     Dates: start: 20081201

REACTIONS (3)
  - ANTIMITOCHONDRIAL ANTIBODY POSITIVE [None]
  - CHOLESTASIS [None]
  - CONDITION AGGRAVATED [None]
